FAERS Safety Report 8062536-4 (Version None)
Quarter: 2012Q1

REPORT INFORMATION
  Report Type: 
  Country: None (occurrence: None)
  Receive Date: 20120123
  Receipt Date: 20120112
  Transmission Date: 20120608
  Serious: Yes (Life-Threatening, Hospitalization)
  Sender: FDA-Public Use
  Company Number: US-BAYER-2011-087452

PATIENT
  Age: 35 Year
  Sex: Female
  Weight: 104.31 kg

DRUGS (4)
  1. YASMIN [Suspect]
     Dosage: UNK
     Route: 048
     Dates: start: 20091101, end: 20091101
  2. IBUPROFEN [Concomitant]
     Dosage: 600 MG, UNK
     Route: 048
  3. CARBAMAZEPINE [Concomitant]
     Dosage: 100 MG, UNK
     Route: 048
  4. IUD NOS [Concomitant]

REACTIONS (4)
  - PULMONARY EMBOLISM [None]
  - PAIN [None]
  - THROMBOSIS [None]
  - INJURY [None]
